FAERS Safety Report 5819562-2 (Version None)
Quarter: 2008Q3

REPORT INFORMATION
  Report Type: 
  Country: None (occurrence: None)
  Receive Date: 20080723
  Receipt Date: 20080715
  Transmission Date: 20090109
  Serious: Yes (Hospitalization)
  Sender: FDA-Public Use
  Company Number: GB-WYE-G01869808

PATIENT
  Sex: Female

DRUGS (2)
  1. GEMTUZUMAB OZOGAMICIN [Suspect]
     Dosage: UNKNOWN
     Dates: start: 20080211, end: 20080325
  2. DAUNORUBICIN [Suspect]
     Dosage: UNKNOWN
     Dates: start: 20080211, end: 20080325

REACTIONS (4)
  - CONFUSIONAL STATE [None]
  - HYPOTENSION [None]
  - LUNG CONSOLIDATION [None]
  - PLEURAL EFFUSION [None]
